FAERS Safety Report 6226881-7 (Version None)
Quarter: 2009Q2

REPORT INFORMATION
  Report Type: 
  Country: None (occurrence: None)
  Receive Date: 20090612
  Receipt Date: 20090609
  Transmission Date: 20091009
  Serious: Yes (Death, Hospitalization)
  Sender: FDA-Public Use
  Company Number: DE-BRISTOL-MYERS SQUIBB COMPANY-14644181

PATIENT
  Age: 19 Year
  Sex: Male

DRUGS (3)
  1. CISPLATIN [Suspect]
     Indication: TESTICULAR NEOPLASM
  2. ETOPOSIDE [Suspect]
     Indication: TESTICULAR NEOPLASM
  3. IFOSFAMIDE [Suspect]
     Indication: TESTICULAR NEOPLASM

REACTIONS (4)
  - ACUTE RESPIRATORY DISTRESS SYNDROME [None]
  - HAEMOPTYSIS [None]
  - LYMPHANGIOSIS CARCINOMATOSA [None]
  - NECROSIS [None]
